FAERS Safety Report 5140159-4 (Version None)
Quarter: 2006Q4

REPORT INFORMATION
  Report Type: 
  Country: None (occurrence: None)
  Receive Date: 20061025
  Receipt Date: 20061025
  Transmission Date: 20070319
  Serious: Yes (Hospitalization)
  Sender: FDA-Public Use
  Company Number: None

PATIENT
  Age: 91 Year
  Sex: Male
  Weight: 77.1 kg

DRUGS (6)
  1. ASPIRIN [Suspect]
     Indication: TRANSIENT ISCHAEMIC ATTACK
     Dosage: 325MG  DAILY
     Dates: start: 20040701, end: 20060823
  2. CASPSAICIN [Concomitant]
  3. TRAZODONE HCL [Concomitant]
  4. FELODIPINE [Concomitant]
  5. FUROSEMIDE [Concomitant]
  6. DOCUSATE CA [Concomitant]

REACTIONS (3)
  - DUODENAL ULCER [None]
  - NAUSEA [None]
  - VOMITING [None]
